FAERS Safety Report 23516316 (Version 2)
Quarter: 2024Q1

REPORT INFORMATION
  Report Type: Report from Study
  Country: CO (occurrence: CO)
  Receive Date: 20240213
  Receipt Date: 20240222
  Transmission Date: 20240410
  Serious: Yes (Other)
  Sender: FDA-Public Use
  Company Number: CO-BAYER-2024A022195

PATIENT
  Age: 50 Year
  Sex: Female

DRUGS (2)
  1. VENTAVIS [Suspect]
     Active Substance: ILOPROST
     Indication: Pulmonary arterial hypertension
     Dosage: UNK,6 NEBULISATIONS PER DAY OR AS PER THE MEDICAL ORDER
     Route: 055
     Dates: start: 20220912
  2. VENTAVIS [Suspect]
     Active Substance: ILOPROST
     Dosage: 6 NEBULISATIONS A DAY
     Route: 055
     Dates: start: 20220919

REACTIONS (7)
  - Headache [Not Recovered/Not Resolved]
  - Pain in extremity [Not Recovered/Not Resolved]
  - Back pain [Not Recovered/Not Resolved]
  - Chest pain [Not Recovered/Not Resolved]
  - Vomiting [Not Recovered/Not Resolved]
  - Dizziness [Not Recovered/Not Resolved]
  - Product dose omission issue [Not Recovered/Not Resolved]

NARRATIVE: CASE EVENT DATE: 20240205
